FAERS Safety Report 8168599 (Version 3)
Quarter: 2013Q1

REPORT INFORMATION
  Report Type: Report from Study
  Country: DE (occurrence: DE)
  Receive Date: 20111005
  Receipt Date: 20130207
  Transmission Date: 20140127
  Serious: Yes (Life-Threatening, Hospitalization)
  Sender: FDA-Public Use
  Company Number: DE-BRISTOL-MYERS SQUIBB COMPANY-16121022

PATIENT
  Age: 64 Year
  Sex: Male

DRUGS (3)
  1. CETUXIMAB [Suspect]
     Indication: OESOPHAGEAL CARCINOMA
     Dosage: RECENT INF 11JUL11 AND RESTARTED ON 15JUN2011:500MG
     Route: 042
     Dates: start: 20110428
  2. CISPLATIN FOR INJ [Suspect]
     Indication: OESOPHAGEAL CARCINOMA
     Dosage: RECENT INF 11JUL11 AND RESTARTED ON 14JUN2011:50MG
     Route: 042
     Dates: start: 20110428
  3. DOCETAXEL [Suspect]
     Indication: OESOPHAGEAL CARCINOMA
     Dosage: RECENT INF 20MAY11 (22 DYS)AND RESTARTED ON 14JUN2011:40MG
     Route: 042
     Dates: start: 20110428

REACTIONS (2)
  - Respiratory failure [Recovered/Resolved with Sequelae]
  - Infectious pleural effusion [Recovered/Resolved with Sequelae]
